FAERS Safety Report 9431849 (Version 3)
Quarter: 2013Q4

REPORT INFORMATION
  Report Type: Report from Study
  Country: JP (occurrence: JP)
  Receive Date: 20130731
  Receipt Date: 20131211
  Transmission Date: 20140711
  Serious: Yes (Disabling, Other)
  Sender: FDA-Public Use
  Company Number: PHHY2013JP080305

PATIENT
  Age: 48 Year
  Sex: Female
  Weight: 47 kg

DRUGS (17)
  1. FTY 720 [Suspect]
     Indication: MULTIPLE SCLEROSIS
     Dosage: 0.5 MG, QD
     Route: 048
     Dates: start: 20120906, end: 20120919
  2. TEGRETOL [Concomitant]
     Indication: PARALYSIS
     Dosage: 400 MG, UNK
     Route: 048
  3. SOLUMEDROL [Concomitant]
     Indication: MULTIPLE SCLEROSIS
     Dosage: 1000 MG, UNK
     Route: 048
     Dates: start: 20111101, end: 20111103
  4. SOLUMEDROL [Concomitant]
     Dosage: 1000 MG, UNK
     Dates: start: 20120928, end: 20120930
  5. SOLUMEDROL [Concomitant]
     Dosage: 1000 MG, UNK
     Dates: start: 20121005, end: 20121007
  6. PREDONINE [Concomitant]
     Indication: MULTIPLE SCLEROSIS
     Dosage: 10 MG, UNK
     Route: 048
     Dates: start: 20110928, end: 20121004
  7. PREDONINE [Concomitant]
     Dosage: 30 MG, QD
     Route: 048
     Dates: end: 20121108
  8. IMURAN [Concomitant]
     Indication: MULTIPLE SCLEROSIS
     Dosage: 50 MG, 100 MG
     Route: 048
     Dates: start: 20111130, end: 20120704
  9. ULGUT [Concomitant]
     Indication: PROPHYLAXIS
     Dosage: 800 MG, UNK
     Route: 048
  10. BONOTEO [Concomitant]
     Indication: PROPHYLAXIS
     Dosage: 50 MG, UNK
     Route: 048
  11. ASPARA-CA [Concomitant]
     Indication: PROPHYLAXIS
     Dosage: 600 MG, UNK
     Route: 048
  12. LANDSEN [Concomitant]
     Indication: PARALYSIS
     Dosage: 1 MG, UNK
     Route: 048
  13. CEPHADOL [Concomitant]
     Indication: DIZZINESS
     Dosage: 75 MG, UNK
     Route: 048
  14. LYRICA [Concomitant]
     Indication: PARALYSIS
     Dosage: 150 MG, UNK
     Route: 048
  15. BAYASPIRIN [Concomitant]
     Indication: ANTIPHOSPHOLIPID SYNDROME
     Dosage: 100 MG, UNK
     Route: 048
  16. TAKEPRON [Concomitant]
     Indication: PROPHYLAXIS
     Dosage: 15 MG, UNK
     Route: 048
  17. BLOPRESS [Concomitant]
     Indication: HYPERTENSION
     Dosage: 4 MG, UNK
     Route: 048

REACTIONS (5)
  - Central nervous system lesion [Recovered/Resolved with Sequelae]
  - Lymphocyte count decreased [Recovered/Resolved]
  - Gamma-glutamyltransferase increased [Not Recovered/Not Resolved]
  - Visual acuity reduced [Unknown]
  - Vision blurred [Unknown]
